FAERS Safety Report 8791543 (Version 1)
Quarter: 2012Q4

REPORT INFORMATION
  Report Type: Spontaneous
  Country: IT (occurrence: None)
  Receive Date: 20120913
  Receipt Date: 20120913
  Transmission Date: 20130627
  Serious: Yes (Death)
  Sender: FDA-Public Use
  Company Number: FK201202621

PATIENT
  Age: 79 Year
  Sex: Female

DRUGS (6)
  1. FUROSEMIDE (MANUFACTURER UNKNOWN) (FUROSEMIDE) (FUROSEMIDE) [Suspect]
  2. RAMIPRIL (RAMIPRIL) [Concomitant]
  3. OMEPRAZOLE (OMEPRAZOLE) [Concomitant]
  4. KETOPROFEN (KETOPROFEN) [Concomitant]
  5. ASPIRIN (ACETYLSALICYLIC ACID) [Concomitant]
  6. CARVEDILOL (CARVEDILOL) [Concomitant]

REACTIONS (7)
  - Renal failure [None]
  - Decreased appetite [None]
  - Asthenia [None]
  - Swelling face [None]
  - Depressive symptom [None]
  - Musculoskeletal pain [None]
  - Cystitis [None]
